FAERS Safety Report 7812368-4 (Version None)
Quarter: 2011Q4

REPORT INFORMATION
  Report Type: 
  Country: None (occurrence: None)
  Receive Date: 20111013
  Receipt Date: 20111006
  Transmission Date: 20120403
  Serious: Yes (Other)
  Sender: FDA-Public Use
  Company Number: FR-GLAXOSMITHKLINE-B0753462A

PATIENT
  Sex: Female

DRUGS (3)
  1. NOCTAMIDE [Concomitant]
     Route: 065
  2. PAROXETINE HCL [Suspect]
     Indication: DEPRESSION
     Dosage: 20MG PER DAY
     Route: 048
     Dates: start: 20020101, end: 20110901
  3. ATHYMIL [Concomitant]
     Route: 065

REACTIONS (6)
  - BONE DISORDER [None]
  - FATIGUE [None]
  - SUICIDAL IDEATION [None]
  - EYE IRRITATION [None]
  - SKIN DISORDER [None]
  - BURNING SENSATION [None]
